FAERS Safety Report 19216523 (Version 1)
Quarter: 2021Q2

REPORT INFORMATION
  Report Type: Spontaneous
  Country: GB (occurrence: GB)
  Receive Date: 20210505
  Receipt Date: 20210505
  Transmission Date: 20210717
  Serious: Yes (Life-Threatening, Hospitalization, Other)
  Sender: FDA-Public Use
  Company Number: GB-B.I. PHARMACEUTICALS,INC./RIDGEFIELD-2021-BI-101554

PATIENT
  Age: 56 Year
  Sex: Female
  Weight: 63.5 kg

DRUGS (13)
  1. CARBOMER [Concomitant]
     Active Substance: CARBOMER
     Indication: ILL-DEFINED DISORDER
  2. DULOXETINE. [Concomitant]
     Active Substance: DULOXETINE
     Indication: ILL-DEFINED DISORDER
  3. NITROFURANTOIN. [Concomitant]
     Active Substance: NITROFURANTOIN
     Indication: ILL-DEFINED DISORDER
  4. DULOXETINE. [Concomitant]
     Active Substance: DULOXETINE
     Indication: DEPRESSION
  5. METFORMIN [Concomitant]
     Active Substance: METFORMIN HYDROCHLORIDE
     Indication: ILL-DEFINED DISORDER
  6. COCODAMOL [Concomitant]
     Active Substance: ACETAMINOPHEN\CODEINE PHOSPHATE
     Indication: ILL-DEFINED DISORDER
  7. CEFALEXIN [Concomitant]
     Active Substance: CEPHALEXIN
     Indication: ILL-DEFINED DISORDER
  8. CLOTRIMAZOLE. [Concomitant]
     Active Substance: CLOTRIMAZOLE
     Indication: ILL-DEFINED DISORDER
  9. COLECALCIFEROL [Concomitant]
     Active Substance: CHOLECALCIFEROL
     Indication: ILL-DEFINED DISORDER
  10. JARDIANCE [Suspect]
     Active Substance: EMPAGLIFLOZIN
     Indication: TYPE 2 DIABETES MELLITUS
     Dosage: 25MG OD
     Route: 048
     Dates: start: 20190409, end: 20210417
  11. INSULIN ASPART [Concomitant]
     Active Substance: INSULIN ASPART
     Indication: ILL-DEFINED DISORDER
  12. BISOPROLOL [Concomitant]
     Active Substance: BISOPROLOL
     Indication: ILL-DEFINED DISORDER
  13. INSULIN GLARGINE [Concomitant]
     Active Substance: INSULIN GLARGINE
     Indication: ILL-DEFINED DISORDER

REACTIONS (6)
  - Acute myocardial infarction [Recovering/Resolving]
  - Pulmonary embolism [Recovering/Resolving]
  - COVID-19 [Unknown]
  - Diabetic ketoacidosis [Recovering/Resolving]
  - Respiratory failure [Recovering/Resolving]
  - Sepsis [Recovering/Resolving]

NARRATIVE: CASE EVENT DATE: 20210417
